FAERS Safety Report 21941896 (Version 1)
Quarter: 2023Q1

REPORT INFORMATION
  Report Type: Report from Study
  Country: US (occurrence: US)
  Receive Date: 20230202
  Receipt Date: 20230202
  Transmission Date: 20230417
  Serious: No
  Sender: FDA-Public Use
  Company Number: US-EXELIXIS-CABO-22055940

PATIENT
  Sex: Male

DRUGS (4)
  1. COMETRIQ [Suspect]
     Active Substance: CABOZANTINIB S-MALATE
     Indication: Thyroid cancer
     Dosage: 100 MG (1 80 MG + 1 20 MG)
     Dates: start: 20220829
  2. COMETRIQ [Suspect]
     Active Substance: CABOZANTINIB S-MALATE
     Dosage: 20 MG
  3. METFORMIN [Concomitant]
     Active Substance: METFORMIN HYDROCHLORIDE
     Dosage: UNK
  4. LEVOTHYROXINE [Concomitant]
     Active Substance: LEVOTHYROXINE
     Dosage: UNK

REACTIONS (10)
  - Pyrexia [Unknown]
  - Secretion discharge [Unknown]
  - Flatulence [Unknown]
  - Productive cough [Unknown]
  - Muscular weakness [Unknown]
  - Peripheral coldness [Unknown]
  - Oral pain [Unknown]
  - Weight decreased [Unknown]
  - Dysphonia [Unknown]
  - Diarrhoea [Unknown]
